FAERS Safety Report 7718798-3 (Version None)
Quarter: 2011Q3

REPORT INFORMATION
  Report Type: 
  Country: None (occurrence: None)
  Receive Date: 20110830
  Receipt Date: 20110824
  Transmission Date: 20111222
  Serious: Yes (Hospitalization)
  Sender: FDA-Public Use
  Company Number: GB-PFIZER INC-2011197311

PATIENT
  Age: 57 Year
  Sex: Male

DRUGS (7)
  1. PARACETAMOL [Concomitant]
  2. PRAVASTATIN [Concomitant]
  3. SUNITINIB MALATE [Suspect]
     Indication: RENAL CELL CARCINOMA
     Dosage: 25 MG, UNK
     Route: 048
  4. AMLODIPINE [Concomitant]
  5. DOXAZOSIN [Concomitant]
  6. MOXONIDINE [Concomitant]
  7. CITALOPRAM [Concomitant]

REACTIONS (2)
  - LIVER INJURY [None]
  - RENAL DISORDER [None]
